FAERS Safety Report 24592634 (Version 1)
Quarter: 2024Q4

REPORT INFORMATION
  Report Type: Spontaneous
  Country: US (occurrence: US)
  Receive Date: 20241108
  Receipt Date: 20241108
  Transmission Date: 20250115
  Serious: No
  Sender: BAYER HEALTHCARE LLC
  Company Number: US-BAYER-2024A158946

PATIENT
  Sex: Female

DRUGS (1)
  1. ASTEPRO [Suspect]
     Active Substance: AZELASTINE HYDROCHLORIDE
     Dosage: 2 SPRAYS IN EACH NOSTRIL ONCE A DAY
     Route: 045
     Dates: start: 20241023, end: 20241103

REACTIONS (1)
  - Vulvovaginal pruritus [Recovered/Resolved with Sequelae]

NARRATIVE: CASE EVENT DATE: 20241030
